FAERS Safety Report 12493098 (Version 1)
Quarter: 2016Q2

REPORT INFORMATION
  Report Type: Spontaneous
  Country: US (occurrence: US)
  Receive Date: 20160623
  Receipt Date: 20160623
  Transmission Date: 20160815
  Serious: Yes (Hospitalization)
  Sender: FDA-Public Use
  Company Number: US-G+W LABS-GW2016US000047

PATIENT

DRUGS (4)
  1. LEVETIRACETAM. [Concomitant]
     Active Substance: LEVETIRACETAM
     Indication: BRAIN ABSCESS
     Dosage: 500 MG, BID
  2. CEFTRIAXONE. [Concomitant]
     Active Substance: CEFTRIAXONE
     Indication: BRAIN ABSCESS
     Dosage: 2 MG, BID
     Route: 041
  3. LINEZOLID. [Concomitant]
     Active Substance: LINEZOLID
     Indication: BRAIN ABSCESS
     Dosage: 50 MG, BID
     Route: 048
  4. METRONIDAZOLE. [Suspect]
     Active Substance: METRONIDAZOLE
     Indication: BRAIN ABSCESS
     Dosage: 750 MG, TID
     Route: 048

REACTIONS (5)
  - Neuropathy peripheral [None]
  - Toxic encephalopathy [Unknown]
  - Toxicity to various agents [None]
  - Gait disturbance [None]
  - Hypoacusis [None]
